FAERS Safety Report 7998119-1 (Version None)
Quarter: 2011Q4

REPORT INFORMATION
  Report Type: 
  Country: None (occurrence: None)
  Receive Date: 20111221
  Receipt Date: 20110211
  Transmission Date: 20120403
  Serious: No
  Sender: FDA-Public Use
  Company Number: US-GLAXOSMITHKLINE-A0913140A

PATIENT
  Age: 78 Year
  Sex: Female

DRUGS (6)
  1. ASPIRIN [Concomitant]
  2. ATACAND [Concomitant]
  3. LIPITOR [Concomitant]
  4. VITAMIN TAB [Concomitant]
  5. LOVAZA [Suspect]
     Indication: BLOOD CHOLESTEROL DECREASED
     Dosage: 1G TWICE PER DAY
     Route: 048
     Dates: start: 20100101
  6. METOPROLOL TARTRATE [Concomitant]

REACTIONS (2)
  - DRUG INEFFECTIVE [None]
  - BLOOD CHOLESTEROL INCREASED [None]
